FAERS Safety Report 7783020-9 (Version None)
Quarter: 2011Q3

REPORT INFORMATION
  Report Type: 
  Country: None (occurrence: None)
  Receive Date: 20110926
  Receipt Date: 20110921
  Transmission Date: 20111222
  Serious: Yes (Death, Hospitalization)
  Sender: FDA-Public Use
  Company Number: 2011SP044492

PATIENT
  Age: 49 Year
  Sex: Male

DRUGS (6)
  1. PREDNISOLONE [Suspect]
     Indication: IMMUNOSUPPRESSION
     Dates: start: 20030101
  2. TACROLIMUS [Suspect]
     Indication: IMMUNOSUPPRESSION
     Dates: start: 20030101, end: 20080101
  3. MYCOPHENOLATE MOFETIL [Suspect]
     Indication: IMMUNOSUPPRESSION
     Dates: start: 20040101
  4. DEXAMETHASONE [Suspect]
     Indication: IMMUNOSUPPRESSION
  5. TRIMETHOPRIM + SULFAMETHOXAZOLE [Suspect]
     Indication: TOXOPLASMOSIS
     Dosage: 480 MG;TIW ; IV
     Route: 042
     Dates: start: 20030101
  6. TRIMETHOPRIM + SULFAMETHOXAZOLE [Suspect]
     Indication: IMMUNOSUPPRESSION
     Dosage: 480 MG;TIW ; IV
     Route: 042
     Dates: start: 20030101

REACTIONS (9)
  - UPPER MOTOR NEURONE LESION [None]
  - TOXOPLASMOSIS [None]
  - CONFUSIONAL STATE [None]
  - INTRACRANIAL PRESSURE INCREASED [None]
  - GENERAL PHYSICAL HEALTH DETERIORATION [None]
  - GRAND MAL CONVULSION [None]
  - PNEUMONIA ASPIRATION [None]
  - HEMIPARESIS [None]
  - DECREASED APPETITE [None]
